FAERS Safety Report 8922589 (Version 1)
Quarter: 2012Q4

REPORT INFORMATION
  Report Type: 
  Country: ES (occurrence: ES)
  Receive Date: 20121123
  Receipt Date: 20121123
  Transmission Date: 20130627
  Serious: Yes (Other)
  Sender: FDA-Public Use
  Company Number: PHHY2012ES105098

PATIENT

DRUGS (1)
  1. ZOLEDRONIC ACID [Suspect]
     Indication: NEOPLASM MALIGNANT

REACTIONS (1)
  - Osteonecrosis of jaw [Unknown]
